FAERS Safety Report 7348373-4 (Version None)
Quarter: 2011Q1

REPORT INFORMATION
  Report Type: 
  Country: None (occurrence: None)
  Receive Date: 20110311
  Receipt Date: 20110303
  Transmission Date: 20110831
  Serious: Yes (Hospitalization)
  Sender: FDA-Public Use
  Company Number: FR-MERCK-1103FRA00006

PATIENT
  Age: 69 Year
  Sex: Male
  Weight: 90 kg

DRUGS (6)
  1. METFORMIN [Concomitant]
     Route: 048
     Dates: start: 20100628
  2. METFORMIN HYDROCHLORIDE AND SITAGLIPTIN PHOSPHATE [Concomitant]
     Indication: TYPE 2 DIABETES MELLITUS
     Route: 048
     Dates: start: 20100119
  3. METFORMIN [Concomitant]
     Indication: TYPE 2 DIABETES MELLITUS
     Route: 048
     Dates: end: 20100118
  4. GLIMEPIRIDE [Concomitant]
     Indication: TYPE 2 DIABETES MELLITUS
     Route: 048
     Dates: start: 20100628, end: 20100722
  5. JANUVIA [Suspect]
     Indication: TYPE 2 DIABETES MELLITUS
     Route: 048
     Dates: start: 20091221, end: 20100118
  6. METFORMIN [Concomitant]
     Route: 048
     Dates: start: 20100119, end: 20100427

REACTIONS (3)
  - SKIN NECROSIS [None]
  - HYPOGLYCAEMIA [None]
  - LIMB INJURY [None]
